FAERS Safety Report 10189888 (Version 1)
Quarter: 2014Q2

REPORT INFORMATION
  Report Type: Spontaneous
  Country: CA (occurrence: CA)
  Receive Date: 20140522
  Receipt Date: 20140522
  Transmission Date: 20141212
  Serious: Yes (Other)
  Sender: FDA-Public Use
  Company Number: CA-IAC KOREA XML-CAN-2014-0004912

PATIENT
  Sex: Female

DRUGS (2)
  1. MORPHINE SULFATE [Suspect]
     Indication: PAIN
     Dosage: UNK
     Route: 065
  2. MORPHINE SULFATE [Suspect]
     Indication: FIBROMYALGIA

REACTIONS (2)
  - Suicidal ideation [Unknown]
  - Drug withdrawal syndrome [Unknown]
